FAERS Safety Report 11201659 (Version 2)
Quarter: 2015Q3

REPORT INFORMATION
  Report Type: Spontaneous
  Country: CA (occurrence: CA)
  Receive Date: 20150619
  Receipt Date: 20150819
  Transmission Date: 20151125
  Serious: No
  Sender: FDA-Public Use
  Company Number: CA-JNJFOC-20150608791

PATIENT
  Age: 68 Year
  Sex: Male
  Weight: 69.85 kg

DRUGS (9)
  1. TRADJENTA [Concomitant]
     Active Substance: LINAGLIPTIN
     Indication: TYPE 2 DIABETES MELLITUS
     Route: 048
     Dates: start: 20141014
  2. CRESTOR [Concomitant]
     Active Substance: ROSUVASTATIN CALCIUM
     Indication: HYPERLIPIDAEMIA
     Route: 048
     Dates: start: 20121109
  3. ASA [Concomitant]
     Active Substance: ASPIRIN
     Indication: CARDIOVASCULAR DISORDER
     Dosage: STARTED 10 YEARS AGO
     Route: 048
  4. COVERSYL PLUS [Concomitant]
     Active Substance: INDAPAMIDE\PERINDOPRIL
     Indication: HYPERTENSION
     Dosage: DOSE : 2.5 MG TO 8 MG , 1 TABLET , STARTED 2 YEARS AGO
     Route: 048
  5. DIAMICRON MR [Concomitant]
     Active Substance: GLICLAZIDE
     Indication: TYPE 2 DIABETES MELLITUS
     Dosage: STARTED 5 YEARS AGO
     Route: 048
  6. METOPROLOL [Concomitant]
     Active Substance: METOPROLOL
     Indication: HYPERTENSION
     Dosage: 0.5 TABLET, STARTED 10 YEARS AGO
     Route: 048
  7. INVOKANA [Suspect]
     Active Substance: CANAGLIFLOZIN
     Indication: TYPE 2 DIABETES MELLITUS
     Route: 048
     Dates: start: 201505
  8. METFORMIN [Concomitant]
     Active Substance: METFORMIN HYDROCHLORIDE
     Indication: TYPE 2 DIABETES MELLITUS
     Dosage: STARTED 10 YEARS AGO
     Route: 048
  9. NITRO SPRAY [Concomitant]
     Dosage: 15 SPRAY, SL Q5 MIN , STARTED 10 YEARS AGO

REACTIONS (1)
  - Drug effect incomplete [Unknown]
